FAERS Safety Report 14039793 (Version 4)
Quarter: 2018Q2

REPORT INFORMATION
  Report Type: Spontaneous
  Country: US (occurrence: US)
  Receive Date: 20171004
  Receipt Date: 20180411
  Transmission Date: 20180711
  Serious: No
  Sender: FDA-Public Use
  Company Number: US-AMGEN-USASP2017144198

PATIENT
  Age: 72 Year
  Sex: Female

DRUGS (2)
  1. PROLIA [Suspect]
     Active Substance: DENOSUMAB
     Indication: OSTEOPENIA
     Dosage: 60 MG, Q6MO
     Route: 065
     Dates: start: 201212
  2. PROLIA [Suspect]
     Active Substance: DENOSUMAB
     Indication: OSTEOPOROSIS POSTMENOPAUSAL

REACTIONS (3)
  - Dysphagia [Not Recovered/Not Resolved]
  - Off label use [Unknown]
  - Throat tightness [Not Recovered/Not Resolved]

NARRATIVE: CASE EVENT DATE: 2017
